FAERS Safety Report 6195111-7 (Version None)
Quarter: 2009Q2

REPORT INFORMATION
  Report Type: 
  Country: None (occurrence: None)
  Receive Date: 20090519
  Receipt Date: 20090512
  Transmission Date: 20091009
  Serious: No
  Sender: FDA-Public Use
  Company Number: US-JNJFOC-20090502912

PATIENT
  Sex: Male
  Weight: 74.84 kg

DRUGS (1)
  1. FENTANYL TRANSDERMAL SYSTEM [Suspect]
     Indication: LUNG CARCINOMA CELL TYPE UNSPECIFIED STAGE IV
     Route: 062

REACTIONS (3)
  - APPLICATION SITE BURN [None]
  - DEVICE LEAKAGE [None]
  - INAPPROPRIATE SCHEDULE OF DRUG ADMINISTRATION [None]
